FAERS Safety Report 7604685-8 (Version None)
Quarter: 2011Q3

REPORT INFORMATION
  Report Type: 
  Country: None (occurrence: None)
  Receive Date: 20110712
  Receipt Date: 20110627
  Transmission Date: 20111222
  Serious: No
  Sender: FDA-Public Use
  Company Number: US-B.I. PHARMACEUTICALS,INC./RIDGEFIELD-2011-BP-11950BP

PATIENT
  Sex: Female

DRUGS (13)
  1. METOPROLOL TARTRATE [Concomitant]
     Indication: ATRIAL FIBRILLATION
     Dosage: 50 MG
     Route: 048
  2. CELEXA [Concomitant]
     Indication: DEPRESSION
     Route: 048
  3. CARDIZEM [Concomitant]
     Indication: ATRIAL FIBRILLATION
     Route: 048
  4. VITAMIN D [Concomitant]
     Indication: VITAMIN SUPPLEMENTATION
     Route: 048
  5. PRADAXA [Suspect]
     Indication: ATRIAL FIBRILLATION
     Dosage: 300 MG
     Route: 048
     Dates: start: 20110401
  6. DILTIAZEM [Concomitant]
     Indication: ATRIAL FIBRILLATION
     Dosage: 240 MG
     Route: 048
  7. TOPOROL [Concomitant]
     Indication: HYPERTENSION
     Route: 048
  8. VITAMIN B-12 [Concomitant]
     Indication: VITAMIN SUPPLEMENTATION
     Route: 048
  9. CO Q10 [Concomitant]
     Indication: VITAMIN SUPPLEMENTATION
     Route: 048
  10. TOPOROL [Concomitant]
     Indication: ATRIAL FIBRILLATION
  11. CARDIZEM [Concomitant]
     Indication: HYPERTENSION
  12. ASPIRIN [Concomitant]
     Indication: PROPHYLAXIS
     Route: 048
  13. METOPROLOL TARTRATE [Concomitant]
     Indication: HYPERTENSION

REACTIONS (4)
  - DRY MOUTH [None]
  - WHEEZING [None]
  - PRURITUS GENERALISED [None]
  - GLOSSODYNIA [None]
